FAERS Safety Report 18004805 (Version 1)
Quarter: 2020Q3

REPORT INFORMATION
  Report Type: Spontaneous
  Country: US (occurrence: US)
  Receive Date: 20200709
  Receipt Date: 20200709
  Transmission Date: 20201103
  Serious: No
  Sender: FDA-Public Use
  Company Number: None

PATIENT

DRUGS (2)
  1. BUPIVACAINE HCL [Suspect]
     Active Substance: BUPIVACAINE HYDROCHLORIDE
     Dosage: ?          OTHER STRENGTH:50MG PER 10 ML;?
  2. ETOMIDATE. [Suspect]
     Active Substance: ETOMIDATE
     Dosage: ?          OTHER STRENGTH:20MG PER 100ML;?

REACTIONS (2)
  - Product packaging confusion [None]
  - Product storage error [None]
